FAERS Safety Report 19205843 (Version 2)
Quarter: 2021Q3

REPORT INFORMATION
  Report Type: Spontaneous
  Country: US (occurrence: US)
  Receive Date: 20210503
  Receipt Date: 20210908
  Transmission Date: 20211014
  Serious: No
  Sender: FDA-Public Use
  Company Number: US-FARMAPROD-202103-0454

PATIENT
  Sex: Female

DRUGS (3)
  1. ARTIFICIAL TEARS [Concomitant]
     Active Substance: GLYCERIN\HYPROMELLOSES\POLYETHYLENE GLYCOL 400
     Dosage: 0.1%?0.3%
  2. OXERVATE [Suspect]
     Active Substance: CENEGERMIN-BKBJ
     Indication: HERPES OPHTHALMIC
     Route: 047
     Dates: start: 20210315
  3. OXERVATE [Suspect]
     Active Substance: CENEGERMIN-BKBJ
     Indication: NEUROTROPHIC KERATOPATHY

REACTIONS (3)
  - Vitreous floaters [Not Recovered/Not Resolved]
  - Photopsia [Not Recovered/Not Resolved]
  - Eye pain [Unknown]
